FAERS Safety Report 4586872-9 (Version None)
Quarter: 2005Q1

REPORT INFORMATION
  Report Type: 
  Country: None (occurrence: None)
  Receive Date: 20050216
  Receipt Date: 20050216
  Transmission Date: 20050727
  Serious: Yes (Life-Threatening)
  Sender: FDA-Public Use
  Company Number: None

PATIENT
  Age: 79 Year
  Sex: Female
  Weight: 61.2356 kg

DRUGS (1)
  1. GLUCOPHAGE XR [Suspect]
     Indication: DIABETES MELLITUS
     Dosage: ONE BID

REACTIONS (2)
  - DYSPNOEA [None]
  - SWOLLEN TONGUE [None]
